FAERS Safety Report 15760208 (Version 1)
Quarter: 2018Q4

REPORT INFORMATION
  Report Type: Spontaneous
  Country: DE (occurrence: PT)
  Receive Date: 20181226
  Receipt Date: 20181226
  Transmission Date: 20190205
  Serious: Yes (Death, Other)
  Sender: FDA-Public Use
  Company Number: DE-PFIZER INC-2018523714

PATIENT
  Sex: Male

DRUGS (3)
  1. VENTAVIS [Interacting]
     Active Substance: ILOPROST
     Indication: PULMONARY ARTERIAL HYPERTENSION
     Dosage: 5 MCG, 6XDAILY
     Route: 055
     Dates: start: 20141212
  2. TRACLEER [Suspect]
     Active Substance: BOSENTAN
     Indication: PULMONARY ARTERIAL HYPERTENSION
     Dosage: UNK
     Route: 048
  3. SILDENAFIL CITRATE. [Suspect]
     Active Substance: SILDENAFIL CITRATE
     Indication: PULMONARY ARTERIAL HYPERTENSION
     Dosage: UNK

REACTIONS (6)
  - Labelled drug-drug interaction medication error [Unknown]
  - Cerebral haematoma [Fatal]
  - Drug interaction [Unknown]
  - Fall [Unknown]
  - Confusional state [Unknown]
  - Hemiparesis [Unknown]

NARRATIVE: CASE EVENT DATE: 20141219
